FAERS Safety Report 6141404-9 (Version None)
Quarter: 2009Q2

REPORT INFORMATION
  Report Type: 
  Country: None (occurrence: None)
  Receive Date: 20090401
  Receipt Date: 20090401
  Transmission Date: 20091009
  Serious: Yes (Other)
  Sender: FDA-Public Use
  Company Number: None

PATIENT
  Age: 33 Year
  Sex: Female
  Weight: 55.7924 kg

DRUGS (1)
  1. YAZ [Suspect]
     Indication: CONTRACEPTION
     Dosage: DAILY  UNK
     Route: 065
     Dates: start: 20071020, end: 20080414

REACTIONS (6)
  - BREAST MASS [None]
  - BREAST PAIN [None]
  - FATIGUE [None]
  - HYPERSOMNIA [None]
  - PELVIC PAIN [None]
  - UTERINE CYST [None]
